FAERS Safety Report 8575084 (Version 4)
Quarter: 2012Q4

REPORT INFORMATION
  Report Type: 
  Country: JP (occurrence: JP)
  Receive Date: 20120523
  Receipt Date: 20121109
  Transmission Date: 20130627
  Serious: Yes (Hospitalization, Other)
  Sender: FDA-Public Use
  Company Number: JP-BAYER-2012-048859

PATIENT
  Age: 68 Year
  Sex: Male
  Weight: 52 kg

DRUGS (28)
  1. NEXAVAR [Suspect]
     Indication: CARCINOMA HEPATOCELLULAR
     Dosage: Daily dose 800 mg
     Route: 048
     Dates: start: 20120104, end: 20120131
  2. NEXAVAR [Suspect]
     Indication: CARCINOMA HEPATOCELLULAR
     Dosage: Daily dose 400 mg
     Route: 048
     Dates: start: 20120201, end: 20120606
  3. CISPLATIN [Suspect]
     Indication: CHEMOEMBOLISATION
     Dosage: Daily dose 33 mg
     Route: 013
     Dates: start: 20120104, end: 20120104
  4. CISPLATIN [Suspect]
     Indication: CHEMOEMBOLISATION
     Dosage: 33 mg, QD
     Route: 013
     Dates: start: 20120111, end: 20120111
  5. CISPLATIN [Suspect]
     Indication: CHEMOEMBOLISATION
     Dosage: 33 mg, QD
     Route: 013
     Dates: start: 20120208, end: 20120208
  6. CISPLATIN [Suspect]
     Indication: CHEMOEMBOLISATION
     Dosage: 33 mg, QD
     Route: 013
     Dates: start: 20120215, end: 20120215
  7. CISPLATIN [Suspect]
     Indication: CHEMOEMBOLISATION
     Dosage: 33 mg, QD
     Route: 030
     Dates: start: 20120404, end: 20120404
  8. CISPLATIN [Suspect]
     Indication: CHEMOEMBOLISATION
     Dosage: 33 mg, QD
     Route: 030
     Dates: start: 20120411, end: 20120411
  9. 5-FU [Suspect]
     Indication: CHEMOEMBOLISATION
     Dosage: Daily dose 554.4 mg
     Route: 013
     Dates: start: 20120104, end: 20120108
  10. 5-FU [Suspect]
     Indication: CHEMOEMBOLISATION
     Dosage: Daily dose 554.4 mg
     Route: 013
     Dates: start: 20120111, end: 20120115
  11. 5-FU [Suspect]
     Indication: CHEMOEMBOLISATION
     Dosage: Daily dose 554.4 mg
     Route: 013
     Dates: start: 20120208, end: 20120212
  12. 5-FU [Suspect]
     Indication: CHEMOEMBOLISATION
     Dosage: Daily dose 554.4 mg
     Route: 013
     Dates: start: 20120215, end: 20120219
  13. 5-FU [Suspect]
     Indication: CHEMOEMBOLISATION
     Dosage: 555 mg, QD
     Route: 030
     Dates: start: 20120404, end: 20120408
  14. 5-FU [Suspect]
     Indication: CHEMOEMBOLISATION
     Dosage: 555 mg, QD
     Route: 030
     Dates: start: 20120411, end: 20120415
  15. VALTREX [Suspect]
     Indication: HERPES ZOSTER
     Dosage: 3 g, QD
     Route: 048
     Dates: start: 20120411, end: 20120415
  16. LIVACT [Concomitant]
     Dosage: Daily dose 12.45 g
     Route: 048
  17. URSO [Concomitant]
     Dosage: Daily dose 300 mg
     Route: 048
  18. MUCOSTA [Concomitant]
     Indication: PROPHYLAXIS
     Dosage: Daily dose 300 mg
     Route: 048
  19. TAKEPRON [Concomitant]
     Indication: PROPHYLAXIS
     Dosage: Daily dose 30 mg
     Route: 048
     Dates: end: 20120306
  20. EUGLUCON [Concomitant]
     Dosage: Daily dose 1.25 mg
     Route: 048
  21. ALDACTONE A [Concomitant]
     Dosage: Daily dose 50 mg
     Route: 048
  22. FUROSEMIDE [Concomitant]
     Dosage: Daily dose 20 mg
     Route: 048
  23. FUROSEMIDE [Concomitant]
     Dosage: 20 mg, QD
     Route: 042
     Dates: start: 20120628, end: 20120630
  24. UREPEARL [Concomitant]
     Indication: PROPHYLAXIS
     Dosage: UNK
     Route: 061
     Dates: start: 20111220
  25. EMEND [Concomitant]
     Indication: PREMEDICATION
     Dosage: 125 mg, QD
     Route: 048
     Dates: start: 20120104, end: 20120104
  26. EMEND [Concomitant]
     Indication: PREMEDICATION
     Dosage: 125 mg, QD
     Route: 048
     Dates: start: 20120111, end: 20120111
  27. EMEND [Concomitant]
     Indication: PREMEDICATION
     Dosage: 125 mg, QD
     Route: 048
     Dates: start: 20120208, end: 20120208
  28. SILECE [Concomitant]
     Dosage: Daily dose 2 mg
     Route: 048

REACTIONS (16)
  - Gastritis erosive [Recovered/Resolved]
  - Hyperbilirubinaemia [Recovered/Resolved]
  - Amylase increased [Recovered/Resolved]
  - Platelet count decreased [Recovered/Resolved]
  - Neutrophil count decreased [Recovered/Resolved]
  - Duodenal ulcer [Recovered/Resolved]
  - Anal abscess [Recovered/Resolved]
  - Necrotising fasciitis [Recovering/Resolving]
  - Lipase increased [Recovered/Resolved]
  - Urobilinogen urine increased [Recovered/Resolved]
  - Abdominal pain [Recovered/Resolved]
  - Herpes zoster [Recovered/Resolved]
  - Pyrexia [Recovered/Resolved]
  - Blood creatinine increased [Recovered/Resolved]
  - Ascites [Recovered/Resolved]
  - Anisakiasis [Recovered/Resolved]
